FAERS Safety Report 14321352 (Version 2)
Quarter: 2018Q1

REPORT INFORMATION
  Report Type: Spontaneous
  Country: JP (occurrence: JP)
  Receive Date: 20171223
  Receipt Date: 20180212
  Transmission Date: 20180509
  Serious: Yes (Hospitalization, Other)
  Sender: FDA-Public Use
  Company Number: PHJP2017JP036767

PATIENT
  Sex: Male

DRUGS (1)
  1. COSENTYX [Suspect]
     Active Substance: SECUKINUMAB
     Indication: PSORIASIS
     Dosage: 300 MG PER ADMINISTRATION
     Route: 058

REACTIONS (3)
  - Faeces discoloured [Unknown]
  - Large intestine polyp [Unknown]
  - Varices oesophageal [Unknown]
